FAERS Safety Report 6943494-X (Version None)
Quarter: 2010Q3

REPORT INFORMATION
  Report Type: 
  Country: None (occurrence: None)
  Receive Date: 20100825
  Receipt Date: 20100825
  Transmission Date: 20110219
  Serious: Yes (Death)
  Sender: FDA-Public Use
  Company Number: None

PATIENT
  Age: 58 Year
  Sex: Female

DRUGS (1)
  1. GASTROGRAFIN [Suspect]

REACTIONS (15)
  - ATRIAL FLUTTER [None]
  - ATRIOVENTRICULAR BLOCK [None]
  - BRADYCARDIA [None]
  - CARDIO-RESPIRATORY ARREST [None]
  - ELECTROCARDIOGRAM QRS COMPLEX PROLONGED [None]
  - ELECTROMECHANICAL DISSOCIATION [None]
  - GASTROINTESTINAL HAEMORRHAGE [None]
  - INFECTION [None]
  - MULTI-ORGAN FAILURE [None]
  - OXYGEN SATURATION DECREASED [None]
  - PUPIL FIXED [None]
  - SEPSIS [None]
  - SKIN DISCOLOURATION [None]
  - TACHYCARDIA [None]
  - UNRESPONSIVE TO STIMULI [None]
